FAERS Safety Report 7730266-1 (Version None)
Quarter: 2011Q3

REPORT INFORMATION
  Report Type: 
  Country: None (occurrence: None)
  Receive Date: 20110906
  Receipt Date: 20110831
  Transmission Date: 20111222
  Serious: Yes (Death)
  Sender: FDA-Public Use
  Company Number: KR-BAYER-2011-071922

PATIENT
  Age: 66 Year
  Sex: Female
  Weight: 68 kg

DRUGS (19)
  1. TRAMADOL HYDROCHLORIDE [Concomitant]
     Indication: ANALGESIC THERAPY
     Dosage: 100 MG, QD
     Dates: start: 20110423, end: 20110607
  2. MUCOSTA [Concomitant]
     Indication: GASTROINTESTINAL DISORDER
     Dosage: 300 MG, QD
     Dates: start: 20100717, end: 20110607
  3. NEXAVAR [Suspect]
     Indication: HEPATIC NEOPLASM MALIGNANT
     Dosage: 400 MG, BID
     Dates: start: 20110527, end: 20110624
  4. MEGACE [Concomitant]
     Indication: INCREASED APPETITE
     Dosage: 20 ML, QD
     Dates: start: 20110502
  5. FRESH FROZEN PLASMA [Concomitant]
     Dosage: 6 U, 400 CC
     Dates: start: 20110626
  6. GANATON [Concomitant]
     Indication: GASTROINTESTINAL DISORDER
     Dosage: 150 MG, QD
     Dates: start: 20110329, end: 20110607
  7. FRESH FROZEN PLASMA [Concomitant]
     Dosage: 6 U, 400 CC
     Dates: start: 20110625
  8. FRESH FROZEN PLASMA [Concomitant]
     Dosage: 6 U, 400 CC
     Dates: start: 20110701
  9. RED BLOOD CELLS [Concomitant]
     Dosage: DAILY DOSE 400 ML
     Dates: start: 20110620
  10. ZANTAC [Concomitant]
     Indication: GASTROINTESTINAL DISORDER
     Dosage: 300 MG, QD
     Dates: start: 20110329, end: 20110607
  11. LAMIVUDINE [Concomitant]
     Dosage: 100 MG, QD
     Dates: start: 20100101
  12. FRESH FROZEN PLASMA [Concomitant]
     Dosage: 4 U, 400 CC
     Dates: start: 20110628
  13. FRESH FROZEN PLASMA [Concomitant]
     Dosage: 6 U, 400 CC
     Dates: start: 20110629
  14. FRESH FROZEN PLASMA [Concomitant]
     Dosage: 6 U, 400 CC
     Dates: start: 20110630
  15. HEPSERA [Concomitant]
     Dosage: 10 MG, QD
     Dates: start: 20110607
  16. LANSOPRAZOLE [Concomitant]
     Indication: GASTROINTESTINAL DISORDER
     Dosage: 15 MG, QD
     Dates: start: 20110608
  17. FRESH FROZEN PLASMA [Concomitant]
     Dosage: 4 U, 400 CC
     Dates: start: 20110624
  18. FRESH FROZEN PLASMA [Concomitant]
     Dosage: 4 U, 400 CC
     Dates: start: 20110627
  19. RED BLOOD CELLS [Concomitant]
     Dosage: 2 U, 400 CC
     Dates: start: 20110701

REACTIONS (1)
  - HEPATIC FAILURE [None]
